FAERS Safety Report 24333679 (Version 1)
Quarter: 2024Q3

REPORT INFORMATION
  Report Type: Report from Study
  Country: SA (occurrence: SA)
  Receive Date: 20240918
  Receipt Date: 20240918
  Transmission Date: 20241016
  Serious: Yes (Hospitalization, Other)
  Sender: SANDOZ
  Company Number: SA-SANDOZ-SDZ2024SA080734

PATIENT
  Age: 78 Year
  Sex: Female

DRUGS (1)
  1. HYRIMOZ [Suspect]
     Active Substance: ADALIMUMAB-ADAZ
     Indication: Rheumatoid arthritis
     Dosage: 40 MG/EVERY 14 DAYS (PFS)
     Route: 058
     Dates: start: 20230201

REACTIONS (1)
  - Sciatica [Recovering/Resolving]

NARRATIVE: CASE EVENT DATE: 20240908
